FAERS Safety Report 6414119-7 (Version None)
Quarter: 2009Q4

REPORT INFORMATION
  Report Type: 
  Country: None (occurrence: None)
  Receive Date: 20091026
  Receipt Date: 20091012
  Transmission Date: 20100525
  Serious: Yes (Life-Threatening, Hospitalization, Disabling, Other)
  Sender: FDA-Public Use
  Company Number: US-MERCK-0903USA01369

PATIENT
  Age: 56 Year
  Sex: Female
  Weight: 90 kg

DRUGS (6)
  1. JANUVIA [Suspect]
     Indication: TYPE 2 DIABETES MELLITUS
     Route: 048
     Dates: start: 20081107, end: 20081208
  2. METFORMIN [Suspect]
     Indication: DIABETES MELLITUS
     Route: 048
     Dates: start: 20060222, end: 20081121
  3. GLUCOTROL XL [Suspect]
     Indication: DIABETES MELLITUS
     Route: 048
     Dates: start: 20070627
  4. LOTENSIN HCT [Concomitant]
     Indication: HYPERTENSION
     Route: 048
     Dates: start: 20060510, end: 20081221
  5. PAXIL [Concomitant]
     Indication: ANXIETY
     Route: 048
     Dates: start: 20041220
  6. RANITIDINE [Concomitant]
     Indication: GASTRITIS
     Route: 048
     Dates: start: 20041220

REACTIONS (4)
  - BLOOD CREATININE INCREASED [None]
  - HYPOGLYCAEMIA [None]
  - NAUSEA [None]
  - RENAL FAILURE [None]
